FAERS Safety Report 19369038 (Version 1)
Quarter: 2021Q2

REPORT INFORMATION
  Report Type: Spontaneous
  Country: CN (occurrence: CN)
  Receive Date: 20210603
  Receipt Date: 20210603
  Transmission Date: 20210717
  Serious: Yes (Other)
  Sender: FDA-Public Use
  Company Number: CN-JNJFOC-20210554791

PATIENT

DRUGS (2)
  1. MOTRIN INFANTS [Suspect]
     Active Substance: IBUPROFEN
     Indication: PATENT DUCTUS ARTERIOSUS
     Route: 048
  2. MOTRIN INFANTS [Suspect]
     Active Substance: IBUPROFEN
     Route: 048

REACTIONS (6)
  - Necrotising colitis [Unknown]
  - Product use in unapproved indication [Unknown]
  - Intraventricular haemorrhage [Unknown]
  - Renal injury [Unknown]
  - Drug intolerance [Unknown]
  - Off label use [Unknown]
